FAERS Safety Report 10162538 (Version 1)
Quarter: 2014Q2

REPORT INFORMATION
  Report Type: Spontaneous
  Country: US (occurrence: US)
  Receive Date: 20140509
  Receipt Date: 20140509
  Transmission Date: 20141212
  Serious: Yes (Other)
  Sender: FDA-Public Use
  Company Number: US-ASTRAZENECA-2014SE30154

PATIENT
  Age: 42 Year
  Sex: Female
  Weight: 67.1 kg

DRUGS (2)
  1. PULMICORT FLEXHALER [Suspect]
     Indication: ASTHMA
     Dosage: 1 PUFF BID
     Route: 055
     Dates: start: 201304
  2. ALBUTEROL [Concomitant]
     Dosage: AS NEEDED

REACTIONS (5)
  - Ankle fracture [Unknown]
  - Respiration abnormal [Unknown]
  - Dyspnoea exertional [Not Recovered/Not Resolved]
  - Circumstance or information capable of leading to medication error [Unknown]
  - Off label use [Unknown]
